FAERS Safety Report 8759719 (Version 2)
Quarter: 2012Q4

REPORT INFORMATION
  Report Type: 
  Country: US (occurrence: US)
  Receive Date: 20120829
  Receipt Date: 20121025
  Transmission Date: 20130627
  Serious: Yes (Hospitalization)
  Sender: FDA-Public Use
  Company Number: US-JNJFOC-20120511775

PATIENT
  Sex: Male
  Weight: 133.81 kg

DRUGS (10)
  1. REMICADE [Suspect]
     Indication: RHEUMATOID ARTHRITIS
     Route: 042
     Dates: start: 201201
  2. REMICADE [Suspect]
     Indication: RHEUMATOID ARTHRITIS
     Route: 042
     Dates: start: 2009, end: 201112
  3. REMICADE [Suspect]
     Indication: RHEUMATOID ARTHRITIS
     Route: 042
     Dates: start: 2010, end: 201206
  4. ARAVA [Concomitant]
     Indication: ARTHRITIS
     Route: 048
     Dates: start: 2009
  5. MOBIC [Concomitant]
     Indication: PAIN
     Route: 048
     Dates: start: 2009
  6. VITAMIN [Concomitant]
     Indication: MEDICAL DIET
     Route: 048
     Dates: start: 1997
  7. TYLENOL EXTRA STRENGTH [Concomitant]
     Indication: PAIN
     Route: 048
  8. RECLAST [Concomitant]
     Indication: OSTEOPOROSIS
     Route: 065
  9. VITAMIN D [Concomitant]
     Indication: OSTEOPOROSIS
     Route: 048
  10. MULTIVITAMINS [Concomitant]
     Route: 048

REACTIONS (8)
  - Migraine [Recovered/Resolved]
  - Arthralgia [Recovered/Resolved]
  - Infusion related reaction [Recovered/Resolved]
  - Asthenia [Recovering/Resolving]
  - Hot flush [Recovered/Resolved]
  - Feeling hot [Recovered/Resolved]
  - Fatigue [Recovering/Resolving]
  - Hyperhidrosis [Recovered/Resolved]
